FAERS Safety Report 22630249 (Version 1)
Quarter: 2023Q2

REPORT INFORMATION
  Report Type: Spontaneous
  Country: CN (occurrence: CN)
  Receive Date: 20230622
  Receipt Date: 20230622
  Transmission Date: 20230721
  Serious: Yes (Other)
  Sender: FDA-Public Use
  Company Number: None

PATIENT
  Age: 61 Year
  Sex: Female
  Weight: 60 kg

DRUGS (6)
  1. CYCLOPHOSPHAMIDE [Suspect]
     Active Substance: CYCLOPHOSPHAMIDE
     Indication: Plasma cell myeloma
     Dosage: AT 08:03:06, 0.4 G, QD, DILUTED WITH 500 ML OF 0.9 % SODIUM CHLORIDE
     Route: 041
     Dates: start: 20230612, end: 20230612
  2. CYCLOPHOSPHAMIDE [Suspect]
     Active Substance: CYCLOPHOSPHAMIDE
     Indication: Light chain analysis
  3. SODIUM CHLORIDE [Suspect]
     Active Substance: SODIUM CHLORIDE
     Indication: Medication dilution
     Dosage: AT 08:03:06, 500 ML, QD, USED TO DILUTE 0.4 G OF CYCLOPHOSPHAMIDE
     Route: 041
     Dates: start: 20230612, end: 20230612
  4. SODIUM CHLORIDE [Suspect]
     Active Substance: SODIUM CHLORIDE
     Dosage: AT 08:30:06, 500 ML, QD, USED TO DILUTE 800 MG OF DARATUMUMAB AT 08:30:06
     Route: 041
     Dates: start: 20230611, end: 20230611
  5. DARATUMUMAB [Suspect]
     Active Substance: DARATUMUMAB
     Indication: Plasma cell myeloma
     Dosage: AT 08:30:06, 800 MG, QD, DILUTED WITH 500 ML OF 0.9 % SODIUM CHLORIDE
     Route: 041
     Dates: start: 20230611, end: 20230611
  6. DARATUMUMAB [Suspect]
     Active Substance: DARATUMUMAB
     Indication: Light chain analysis

REACTIONS (1)
  - Myelosuppression [Recovering/Resolving]

NARRATIVE: CASE EVENT DATE: 20230613
